FAERS Safety Report 5281835-2 (Version None)
Quarter: 2007Q1

REPORT INFORMATION
  Report Type: 
  Country: None (occurrence: None)
  Receive Date: 20070330
  Receipt Date: 20070319
  Transmission Date: 20070707
  Serious: Yes (Other)
  Sender: FDA-Public Use
  Company Number: HQWYE818127MAR07

PATIENT
  Age: 52 Year
  Sex: Female

DRUGS (4)
  1. EFFEXOR XR [Suspect]
     Indication: MAJOR DEPRESSION
  2. EFFEXOR XR [Suspect]
     Indication: GENERALISED ANXIETY DISORDER
  3. CLONAZEPAM [Concomitant]
     Indication: GENERALISED ANXIETY DISORDER
     Dosage: ^LOW DOSE^
  4. CLONAZEPAM [Concomitant]
     Dosage: ^INCREASED DOSE TO 3 TIMES/DAY^, UNKNOWN DOSE

REACTIONS (9)
  - ANXIETY [None]
  - CONDITION AGGRAVATED [None]
  - DEPRESSION [None]
  - DRUG WITHDRAWAL SYNDROME [None]
  - FATIGUE [None]
  - MYALGIA [None]
  - PSYCHOMOTOR HYPERACTIVITY [None]
  - RHINORRHOEA [None]
  - SUICIDAL IDEATION [None]
